FAERS Safety Report 20438680 (Version 8)
Quarter: 2023Q4

REPORT INFORMATION
  Report Type: Report from Study
  Country: GB (occurrence: GB)
  Receive Date: 20220207
  Receipt Date: 20231010
  Transmission Date: 20240109
  Serious: Yes (Hospitalization)
  Sender: FDA-Public Use
  Company Number: GB-EXELIXIS-XL18422048745

PATIENT

DRUGS (34)
  1. CABOZANTINIB [Suspect]
     Active Substance: CABOZANTINIB
     Indication: Metastatic renal cell carcinoma
     Dosage: 60 MG, QD
     Route: 048
     Dates: start: 20210823
  2. CABOZANTINIB [Suspect]
     Active Substance: CABOZANTINIB
     Dosage: 20 MG
     Route: 048
  3. ATEZOLIZUMAB [Suspect]
     Active Substance: ATEZOLIZUMAB
     Indication: Metastatic renal cell carcinoma
     Dosage: UNK
  4. MORPHINE SULFATE [Concomitant]
     Active Substance: MORPHINE SULFATE
     Indication: Arthralgia
     Dosage: 100 MG, BID
     Route: 048
     Dates: start: 20210804
  5. MORPHINE SULFATE [Concomitant]
     Active Substance: MORPHINE SULFATE
     Indication: Back pain
  6. CHLORPHENIRAMINE [Concomitant]
     Active Substance: CHLORPHENIRAMINE
     Indication: Dry skin
     Dosage: 4 MG, AS REQUIRED
     Route: 048
     Dates: start: 2018
  7. CYCLIZINE [Concomitant]
     Active Substance: CYCLIZINE
     Indication: Nausea
     Dosage: 50 MG, AS REQUIRED
     Route: 048
     Dates: start: 2018
  8. CYCLIZINE [Concomitant]
     Active Substance: CYCLIZINE
     Dosage: 50 MG, AS REQUIRED
     Route: 048
     Dates: start: 20210909
  9. MORPHINE SULFATE [Concomitant]
     Active Substance: MORPHINE SULFATE
     Indication: Pain
     Dosage: 30 MG, AS REQUIRED
     Route: 048
     Dates: start: 2019
  10. BREZTRI [Concomitant]
     Active Substance: BUDESONIDE\FORMOTEROL\GLYCOPYRROLATE
     Indication: Chronic obstructive pulmonary disease
     Dosage: 1 PUFF, AS REQUIRED
     Route: 055
     Dates: start: 2018
  11. VENTOLIN [Concomitant]
     Active Substance: ALBUTEROL SULFATE
     Indication: Chronic obstructive pulmonary disease
     Dosage: 1 PUFF, AS REQUIRED
     Route: 055
     Dates: start: 2018
  12. ACETAMINOPHEN [Concomitant]
     Active Substance: ACETAMINOPHEN
     Indication: Pain
     Dosage: 1 G
     Route: 048
     Dates: start: 202106
  13. SENNA [Concomitant]
     Active Substance: SENNA LEAF\SENNOSIDES\SENNOSIDES A AND B
     Indication: Constipation
     Dosage: 02 TABLETS, AS REQUIRED
     Route: 048
     Dates: start: 202108
  14. RAMIPRIL [Concomitant]
     Active Substance: RAMIPRIL
     Indication: Hypertension
     Dosage: 2.5 MG, QD
     Route: 048
     Dates: start: 20210901
  15. RAMIPRIL [Concomitant]
     Active Substance: RAMIPRIL
     Dosage: 5 MG, QD
     Route: 048
     Dates: start: 20211108
  16. RAMIPRIL [Concomitant]
     Active Substance: RAMIPRIL
     Dosage: 10 MG, QD
     Route: 048
     Dates: start: 20211123
  17. LORAZEPAM [Concomitant]
     Active Substance: LORAZEPAM
     Indication: Nausea
     Dosage: 1.5 MG, AS REQUIRED
     Route: 060
     Dates: start: 20210909
  18. BENZYDAMINE [Concomitant]
     Active Substance: BENZYDAMINE
     Indication: Oral pain
     Dosage: 10 ML, AS REQUIRED
     Route: 048
     Dates: start: 20211008
  19. LEVOTHYROXINE [Concomitant]
     Active Substance: LEVOTHYROXINE
     Indication: Hypothyroidism
     Dosage: 125 MG, QD
     Route: 048
     Dates: start: 20211108
  20. LEVOTHYROXINE [Concomitant]
     Active Substance: LEVOTHYROXINE
     Dosage: 150 MG, QD
     Route: 048
     Dates: start: 20211221
  21. IBUPROFEN [Concomitant]
     Active Substance: IBUPROFEN
     Indication: Pain in jaw
     Dosage: 0.5 ML, QD
     Route: 061
     Dates: start: 202111
  22. COVID 19 PFIZER VACCINE [Concomitant]
     Dosage: UNK
     Dates: start: 20210317
  23. IMODIUM [Concomitant]
     Active Substance: LOPERAMIDE HYDROCHLORIDE
     Indication: Diarrhoea
     Dosage: 10 MG, 1 IN 1 AS REQUIRED
     Route: 048
     Dates: start: 20210823
  24. DOCUSATE SODIUM [Concomitant]
     Active Substance: DOCUSATE SODIUM
     Indication: Constipation
     Dosage: 10 MG, TID
     Route: 048
     Dates: start: 20210913
  25. FORTIJUICE [Concomitant]
     Dosage: UNK
  26. AMLODIPINE [Concomitant]
     Active Substance: AMLODIPINE BESYLATE
     Indication: Hypertension
     Dosage: 5 MG, BID
     Route: 048
     Dates: start: 20211129
  27. PREGABALIN [Concomitant]
     Active Substance: PREGABALIN
     Indication: Pain in jaw
     Dosage: UNK UNK, QD
     Route: 048
     Dates: start: 20211201, end: 20220117
  28. ERYTHROMYCIN [Concomitant]
     Active Substance: ERYTHROMYCIN
     Indication: Lower respiratory tract infection
     Dosage: 250 MG, QID
     Route: 048
     Dates: start: 20220104, end: 202201
  29. ACETIC ACID [Concomitant]
     Active Substance: ACETIC ACID
     Indication: Ear infection
     Dosage: 2 %, TID
     Route: 061
     Dates: start: 20220110
  30. NORTRIPTYLINE [Concomitant]
     Active Substance: NORTRIPTYLINE
     Indication: Pain in jaw
     Dosage: UNK UNK, QD
     Route: 048
     Dates: start: 20220118
  31. CIPROFLOXACIN [Concomitant]
     Active Substance: CIPROFLOXACIN
     Indication: Ear infection
     Dosage: 750 MG, BID
     Route: 048
     Dates: start: 20220120, end: 20220124
  32. CIPROFLOXACIN [Concomitant]
     Active Substance: CIPROFLOXACIN
     Dosage: 400 MG, Q6HR
     Route: 042
     Dates: start: 20220124, end: 20220126
  33. CIPROFLOXACIN\DEXAMETHASONE [Concomitant]
     Active Substance: CIPROFLOXACIN\DEXAMETHASONE
     Indication: Otitis externa
     Dosage: 0.3 %, Q6HR
     Dates: start: 20220124, end: 20220126
  34. RADIATION THERAPY [Concomitant]
     Active Substance: RADIATION THERAPY

REACTIONS (1)
  - Otitis externa [Not Recovered/Not Resolved]

NARRATIVE: CASE EVENT DATE: 20220126
